FAERS Safety Report 12665290 (Version 1)
Quarter: 2016Q3

REPORT INFORMATION
  Report Type: Spontaneous
  Country: AU (occurrence: AU)
  Receive Date: 20160818
  Receipt Date: 20160818
  Transmission Date: 20161109
  Serious: Yes (Death)
  Sender: FDA-Public Use
  Company Number: AU-SA-2016SA148722

PATIENT
  Sex: Male

DRUGS (2)
  1. SOLOSTAR [Concomitant]
     Active Substance: DEVICE
     Indication: DEVICE THERAPY
     Dates: start: 2015
  2. TOUJEO [Suspect]
     Active Substance: INSULIN GLARGINE
     Route: 065
     Dates: start: 2015

REACTIONS (1)
  - Hepatic cancer [Fatal]
